FAERS Safety Report 4802116-4 (Version None)
Quarter: 2005Q4

REPORT INFORMATION
  Report Type: 
  Country: None (occurrence: None)
  Receive Date: 20051011
  Receipt Date: 20050930
  Transmission Date: 20060501
  Serious: Yes (Death)
  Sender: FDA-Public Use
  Company Number: GXKR2005US01725

PATIENT
  Age: 34 Year
  Sex: Male

DRUGS (5)
  1. TRAMADOL (NGX) (TRAMADOL) UNKNOWN [Suspect]
  2. AMITRIPTYLINE HCL [Suspect]
  3. ACTEAMINOPHEN (PARACETAMOL) [Concomitant]
  4. METAXALONE [Concomitant]
  5. OXYCODONE HCL [Concomitant]

REACTIONS (6)
  - DRUG INTERACTION [None]
  - DRUG TOXICITY [None]
  - INTENTIONAL DRUG MISUSE [None]
  - MULTIPLE DRUG OVERDOSE [None]
  - PULMONARY CONGESTION [None]
  - SUICIDE ATTEMPT [None]
